FAERS Safety Report 7916495-2 (Version None)
Quarter: 2011Q4

REPORT INFORMATION
  Report Type: 
  Country: None (occurrence: None)
  Receive Date: 20111114
  Receipt Date: 20111028
  Transmission Date: 20120403
  Serious: Yes (Other)
  Sender: FDA-Public Use
  Company Number: TPA2011A07207

PATIENT
  Age: 57 Year
  Sex: Male

DRUGS (3)
  1. NORVASC [Suspect]
     Dates: start: 20110817, end: 20111011
  2. EDARBI [Suspect]
     Dosage: 80 MG
     Dates: start: 20110817, end: 20111011
  3. CATAPRES [Concomitant]

REACTIONS (2)
  - HYPOTENSION [None]
  - RENAL IMPAIRMENT [None]
